FAERS Safety Report 11555906 (Version 3)
Quarter: 2017Q4

REPORT INFORMATION
  Report Type: Spontaneous
  Country: NO (occurrence: NO)
  Receive Date: 20150925
  Receipt Date: 20171230
  Transmission Date: 20180320
  Serious: Yes (Other)
  Sender: FDA-Public Use
  Company Number: NO-BAUSCH-BL-2015-022303

PATIENT
  Age: 37 Year
  Sex: Female
  Weight: 63 kg

DRUGS (3)
  1. ALDARA [Suspect]
     Active Substance: IMIQUIMOD
     Indication: ANAL CANCER
  2. ALDARA [Suspect]
     Active Substance: IMIQUIMOD
     Indication: ANORECTAL DISORDER
     Dosage: TOTAL DOSE: 750 MG EVERY WEEKS, APPLIED AT BEDTIME
     Route: 061
     Dates: start: 20140217, end: 20140606
  3. NAPROXEN. [Concomitant]
     Active Substance: NAPROXEN
     Indication: PRODUCT USED FOR UNKNOWN INDICATION

REACTIONS (8)
  - Sleep disorder [Unknown]
  - Ocular discomfort [Recovering/Resolving]
  - Hyperacusis [Not Recovered/Not Resolved]
  - Post viral fatigue syndrome [Not Recovered/Not Resolved]
  - Diaphragmatic disorder [Not Recovered/Not Resolved]
  - Influenza like illness [Unknown]
  - Feeling abnormal [Not Recovered/Not Resolved]
  - Cognitive disorder [Unknown]

NARRATIVE: CASE EVENT DATE: 2014
